FAERS Safety Report 17911666 (Version 2)
Quarter: 2020Q2

REPORT INFORMATION
  Report Type: Spontaneous
  Country: US (occurrence: US)
  Receive Date: 20200618
  Receipt Date: 20200622
  Transmission Date: 20200714
  Serious: No
  Sender: FDA-Public Use
  Company Number: US-PFIZER INC-2020236724

PATIENT
  Age: 59 Year
  Sex: Female

DRUGS (1)
  1. IBRANCE [Suspect]
     Active Substance: PALBOCICLIB
     Dosage: 125 MG
     Dates: start: 20200122

REACTIONS (6)
  - Headache [Unknown]
  - Hypoaesthesia [Unknown]
  - Cough [Unknown]
  - Hyposmia [Unknown]
  - Hypoacusis [Unknown]
  - Stomatitis [Unknown]

NARRATIVE: CASE EVENT DATE: 2020
